FAERS Safety Report 15833637 (Version 3)
Quarter: 2019Q3

REPORT INFORMATION
  Report Type: Spontaneous
  Country: IT (occurrence: IT)
  Receive Date: 20190116
  Receipt Date: 20190822
  Transmission Date: 20191004
  Serious: Yes (Hospitalization)
  Sender: FDA-Public Use
  Company Number: IT-ASTRAZENECA-2019SE04590

PATIENT
  Age: 31 Year
  Sex: Male

DRUGS (4)
  1. LYRICA [Suspect]
     Active Substance: PREGABALIN
     Indication: BORDERLINE PERSONALITY DISORDER
     Dosage: 75.0MG ONCE/SINGLE ADMINISTRATION
     Route: 048
  2. QUETIAPINE. [Suspect]
     Active Substance: QUETIAPINE
     Indication: BORDERLINE PERSONALITY DISORDER
     Dosage: 100.0MG ONCE/SINGLE ADMINISTRATION
     Route: 048
  3. RIVOTRIL [Suspect]
     Active Substance: CLONAZEPAM
     Indication: BORDERLINE PERSONALITY DISORDER
     Dosage: 2.0MG ONCE/SINGLE ADMINISTRATION
     Route: 048
  4. FLUOXETINE [Suspect]
     Active Substance: FLUOXETINE HYDROCHLORIDE
     Indication: BORDERLINE PERSONALITY DISORDER
     Dosage: 200.0MG ONCE/SINGLE ADMINISTRATION
     Route: 048

REACTIONS (1)
  - Substance abuse [Unknown]

NARRATIVE: CASE EVENT DATE: 20180407
